FAERS Safety Report 7333089-0 (Version None)
Quarter: 2011Q1

REPORT INFORMATION
  Report Type: 
  Country: None (occurrence: None)
  Receive Date: 20110304
  Receipt Date: 20110301
  Transmission Date: 20110831
  Serious: Yes (Hospitalization, Other)
  Sender: FDA-Public Use
  Company Number: US-ABBOTT-11P-163-0699526-00

PATIENT
  Sex: Female
  Weight: 52.21 kg

DRUGS (2)
  1. HUMIRA [Suspect]
     Indication: PSORIASIS
     Dosage: LOADING DOSE 80MG
     Dates: start: 20101229, end: 20101229
  2. HUMIRA [Suspect]
     Dates: start: 20110105, end: 20110105

REACTIONS (2)
  - EPILEPSY [None]
  - GRAND MAL CONVULSION [None]
